FAERS Safety Report 8370866-1 (Version None)
Quarter: 2012Q2

REPORT INFORMATION
  Report Type: 
  Country: None (occurrence: None)
  Receive Date: 20120518
  Receipt Date: 20110614
  Transmission Date: 20120825
  Serious: No
  Sender: FDA-Public Use
  Company Number: US-ASTRAZENECA-2011SE46693

PATIENT
  Sex: Female

DRUGS (4)
  1. VITAMIN TAB [Concomitant]
     Dosage: UNKNOWN
  2. MIRALAX [Concomitant]
     Dosage: UNKNOWN
  3. PRILOSEC OTC [Suspect]
     Route: 048
     Dates: start: 20110604, end: 20110613
  4. LACTAID [Concomitant]
     Dosage: UNKNOWN

REACTIONS (5)
  - FLUSHING [None]
  - DECREASED APPETITE [None]
  - PALPITATIONS [None]
  - NAUSEA [None]
  - ASTHENIA [None]
